FAERS Safety Report 11245305 (Version 1)
Quarter: 2015Q3

REPORT INFORMATION
  Report Type: Spontaneous
  Country: US (occurrence: US)
  Receive Date: 20150707
  Receipt Date: 20150707
  Transmission Date: 20151125
  Serious: No
  Sender: FDA-Public Use
  Company Number: US-DSJP-DSU-2015-109974

PATIENT
  Sex: Female

DRUGS (4)
  1. JANUMET [Concomitant]
     Active Substance: METFORMIN HYDROCHLORIDE\SITAGLIPTIN PHOSPHATE
     Indication: DIABETES MELLITUS
     Dosage: UNK
  2. WELCHOL [Suspect]
     Active Substance: COLESEVELAM HYDROCHLORIDE
     Indication: DIABETES MELLITUS
  3. WELCHOL [Suspect]
     Active Substance: COLESEVELAM HYDROCHLORIDE
     Indication: DIARRHOEA
     Dosage: 625 MG, BID
     Route: 048
  4. WELCHOL [Suspect]
     Active Substance: COLESEVELAM HYDROCHLORIDE
     Indication: BLOOD CHOLESTEROL ABNORMAL

REACTIONS (2)
  - No adverse event [Not Recovered/Not Resolved]
  - Off label use [Not Recovered/Not Resolved]
